FAERS Safety Report 7555716-5 (Version None)
Quarter: 2011Q2

REPORT INFORMATION
  Report Type: 
  Country: None (occurrence: None)
  Receive Date: 20110617
  Receipt Date: 20110608
  Transmission Date: 20111010
  Serious: Yes (Hospitalization, Disabling, Other)
  Sender: FDA-Public Use
  Company Number: US-MERCK-1001USA01361

PATIENT
  Age: 59 Year
  Sex: Female
  Weight: 68 kg

DRUGS (29)
  1. FOSAMAX [Suspect]
     Indication: OSTEOPOROSIS
     Route: 048
     Dates: start: 20011207, end: 20080301
  2. PREDNISONE [Suspect]
     Route: 065
  3. PREDNISONE [Suspect]
     Dosage: TAPERING FROM STEROIDS
     Route: 065
     Dates: start: 20030101, end: 20040101
  4. PREDNISONE [Suspect]
     Route: 065
     Dates: start: 20060101, end: 20060401
  5. ASCORBIC ACID [Concomitant]
     Route: 065
  6. PREDNISONE [Suspect]
     Route: 065
     Dates: start: 20060401, end: 20060601
  7. PREDNISONE [Suspect]
     Route: 065
     Dates: start: 20060901, end: 20080101
  8. PREDNISONE [Suspect]
     Route: 065
     Dates: start: 20040101, end: 20040101
  9. PREDNISONE [Suspect]
     Route: 065
     Dates: start: 20060601, end: 20060901
  10. PREDNISONE [Suspect]
     Route: 065
     Dates: start: 20060401, end: 20060601
  11. PREDNISONE [Suspect]
     Dosage: TAPERING FROM STEROIDS
     Route: 065
     Dates: start: 20030101, end: 20040101
  12. PREDNISONE [Suspect]
     Indication: ORGANISING PNEUMONIA
     Route: 065
     Dates: start: 20011207, end: 20030101
  13. PREDNISONE [Suspect]
     Route: 065
     Dates: start: 20040101, end: 20050501
  14. PREDNISONE [Suspect]
     Indication: EOSINOPHILIC PNEUMONIA
     Route: 065
     Dates: start: 20011207, end: 20030101
  15. PREDNISONE [Suspect]
     Route: 065
     Dates: start: 20050501, end: 20060101
  16. PREDNISONE [Suspect]
     Route: 065
  17. PREDNISONE [Suspect]
     Route: 065
     Dates: start: 20050501, end: 20060101
  18. PREDNISONE [Suspect]
     Route: 065
     Dates: start: 20060601, end: 20060901
  19. PREDNISONE [Suspect]
     Route: 065
     Dates: start: 20040101, end: 20040101
  20. PREDNISONE [Suspect]
     Route: 065
     Dates: start: 20040101, end: 20040101
  21. PREDNISONE [Suspect]
     Route: 065
     Dates: start: 20040101, end: 20050501
  22. PREDNISONE [Suspect]
     Route: 065
  23. PREDNISONE [Suspect]
     Route: 065
     Dates: start: 20060901, end: 20080101
  24. PREDNISONE [Suspect]
     Route: 065
     Dates: start: 20060101, end: 20060401
  25. PREDNISONE [Suspect]
     Route: 065
  26. PREDNISONE [Suspect]
     Route: 065
     Dates: start: 20080101
  27. PREDNISONE [Suspect]
     Route: 065
     Dates: start: 20040101, end: 20040101
  28. FOSAMAX [Suspect]
     Indication: OSTEOPOROSIS PROPHYLAXIS
     Route: 048
     Dates: start: 20011207, end: 20080301
  29. PREDNISONE [Suspect]
     Route: 065
     Dates: start: 20080101

REACTIONS (61)
  - GAIT DISTURBANCE [None]
  - RADICULOPATHY [None]
  - LIP AND/OR ORAL CAVITY CANCER [None]
  - AORTIC VALVE SCLEROSIS [None]
  - ATYPICAL MYCOBACTERIUM TEST POSITIVE [None]
  - CATARACT [None]
  - UPPER-AIRWAY COUGH SYNDROME [None]
  - OSTEOLYSIS [None]
  - NEUROPATHY PERIPHERAL [None]
  - LOOSE TOOTH [None]
  - DENTAL CARIES [None]
  - CARPAL TUNNEL SYNDROME [None]
  - NEUROGENIC BLADDER [None]
  - RHINITIS ALLERGIC [None]
  - IMPAIRED HEALING [None]
  - CAUDA EQUINA SYNDROME [None]
  - ADJUSTMENT DISORDER [None]
  - DEEP VEIN THROMBOSIS [None]
  - OSTEOARTHRITIS [None]
  - DYSAESTHESIA [None]
  - INTERVERTEBRAL DISC PROTRUSION [None]
  - POST PROCEDURAL COMPLICATION [None]
  - ANXIETY [None]
  - BONE DENSITY INCREASED [None]
  - MUSCULOSKELETAL PAIN [None]
  - HYPERTENSION [None]
  - EMPHYSEMA [None]
  - SINUS TACHYCARDIA [None]
  - OSTEONECROSIS OF JAW [None]
  - OSTEOMYELITIS [None]
  - HYPERLIPIDAEMIA [None]
  - HUMERUS FRACTURE [None]
  - FALL [None]
  - TOOTHACHE [None]
  - TOOTH DISCOLOURATION [None]
  - OROPHARYNGEAL PAIN [None]
  - SOFT TISSUE DISORDER [None]
  - CELLULITIS [None]
  - MUSCULOSKELETAL DISORDER [None]
  - OSTEOSCLEROSIS [None]
  - SPONDYLOLISTHESIS [None]
  - SKIN FRAGILITY [None]
  - WOUND DEHISCENCE [None]
  - SINUSITIS [None]
  - OSTEOPENIA [None]
  - INTERVERTEBRAL DISC DISORDER [None]
  - LEUKOCYTOSIS [None]
  - COUGH [None]
  - DEPRESSION [None]
  - NEUROGENIC BOWEL [None]
  - ORGANISING PNEUMONIA [None]
  - GINGIVAL RECESSION [None]
  - PERONEAL NERVE PALSY [None]
  - PERIPHERAL SENSORIMOTOR NEUROPATHY [None]
  - MITRAL VALVE SCLEROSIS [None]
  - SKIN ULCER [None]
  - DIPLEGIA [None]
  - LOCALISED INFECTION [None]
  - SUBCUTANEOUS ABSCESS [None]
  - PERIODONTITIS [None]
  - ORAL INFECTION [None]
